FAERS Safety Report 9641057 (Version 1)
Quarter: 2013Q4

REPORT INFORMATION
  Report Type: Report from Study
  Country: US (occurrence: US)
  Receive Date: 20131023
  Receipt Date: 20131023
  Transmission Date: 20140711
  Serious: No
  Sender: FDA-Public Use
  Company Number: US-ABBVIE-13P-163-1145730-00

PATIENT
  Age: 45 Year
  Sex: Female

DRUGS (5)
  1. LUPRON DEPOT [Suspect]
     Indication: ENDOMETRIOSIS
     Dates: start: 20130218, end: 201308
  2. NEURONTIN [Concomitant]
     Indication: MIGRAINE
  3. MULTIVITAMIN [Concomitant]
     Indication: PRODUCT USED FOR UNKNOWN INDICATION
  4. MAGNESIUM [Concomitant]
     Indication: PRODUCT USED FOR UNKNOWN INDICATION
  5. CALCIUM [Concomitant]

REACTIONS (23)
  - Influenza like illness [Not Recovered/Not Resolved]
  - Pyrexia [Not Recovered/Not Resolved]
  - Night sweats [Not Recovered/Not Resolved]
  - Insomnia [Not Recovered/Not Resolved]
  - Headache [Not Recovered/Not Resolved]
  - Pain [Not Recovered/Not Resolved]
  - Hot flush [Not Recovered/Not Resolved]
  - Migraine [Not Recovered/Not Resolved]
  - Amnesia [Unknown]
  - Language disorder [Unknown]
  - Arthralgia [Unknown]
  - Arthritis [Unknown]
  - Muscular weakness [Unknown]
  - Bone pain [Unknown]
  - Menstruation irregular [Unknown]
  - Metrorrhagia [Unknown]
  - Mobility decreased [Unknown]
  - Asthenia [Unknown]
  - Increased tendency to bruise [Unknown]
  - Joint destruction [Unknown]
  - Arthropathy [Unknown]
  - Arthralgia [Unknown]
  - Back pain [Unknown]
